FAERS Safety Report 19110879 (Version 2)
Quarter: 2021Q3

REPORT INFORMATION
  Report Type: Spontaneous
  Country: CA (occurrence: CA)
  Receive Date: 20210408
  Receipt Date: 20210722
  Transmission Date: 20211014
  Serious: Yes (Other)
  Sender: FDA-Public Use
  Company Number: CA-SAMSUNG BIOEPIS-SB-2021-08631

PATIENT
  Age: 73 Year
  Sex: Female
  Weight: 91 kg

DRUGS (2)
  1. INFLIXIMAB [Suspect]
     Active Substance: INFLIXIMAB
     Indication: CROHN^S DISEASE
     Route: 042
  2. IMURAN [Concomitant]
     Active Substance: AZATHIOPRINE
     Indication: PRODUCT USED FOR UNKNOWN INDICATION
     Route: 048

REACTIONS (13)
  - Seasonal allergy [Unknown]
  - Cough [Unknown]
  - Glomerular filtration rate decreased [Unknown]
  - Off label use [Unknown]
  - Inappropriate schedule of product administration [Unknown]
  - Platelet count decreased [Unknown]
  - Blood creatinine increased [Unknown]
  - Protein total increased [Unknown]
  - White blood cell count increased [Unknown]
  - Intentional product use issue [Unknown]
  - Blood glucose increased [Unknown]
  - C-reactive protein increased [Unknown]
  - Mean cell volume increased [Unknown]
